FAERS Safety Report 8915298 (Version 4)
Quarter: 2013Q3

REPORT INFORMATION
  Report Type: Spontaneous
  Country: MX (occurrence: MX)
  Receive Date: 20121119
  Receipt Date: 20130805
  Transmission Date: 20140515
  Serious: Yes (Other)
  Sender: FDA-Public Use
  Company Number: MX-ROCHE-1155813

PATIENT
  Age: 33 Year
  Sex: Female
  Weight: 74 kg

DRUGS (11)
  1. BECLOMETASONE DIPROPIONATE [Concomitant]
     Route: 065
  2. BUDESONIDE [Concomitant]
     Route: 065
  3. DEFLAZACORT [Concomitant]
     Route: 065
  4. TIOTROPIUM [Concomitant]
     Route: 065
  5. HYDROCORTISONE [Concomitant]
  6. XOLAIR [Suspect]
     Indication: ASTHMA
     Route: 058
  7. BUDESONIDE/FORMOTEROL FUMARATE [Concomitant]
     Route: 065
  8. IPRATROPIUM [Concomitant]
     Route: 065
  9. IPRATROPIUM BROMIDE/SALBUTAMOL/SALBUTAMOL SULFATE [Concomitant]
     Route: 065
  10. MONTELUKAST [Concomitant]
     Route: 065
  11. MOMETASONE [Concomitant]
     Route: 065

REACTIONS (7)
  - Throat irritation [Recovered/Resolved]
  - Blood pressure decreased [Unknown]
  - Anaphylactic reaction [Recovered/Resolved]
  - Cough [Recovered/Resolved]
  - Sensation of foreign body [Recovered/Resolved]
  - Administration site pain [Unknown]
  - Headache [Unknown]
